FAERS Safety Report 8605637-1 (Version None)
Quarter: 2012Q3

REPORT INFORMATION
  Report Type: 
  Country: None (occurrence: None)
  Receive Date: 20120820
  Receipt Date: 20120813
  Transmission Date: 20120928
  Serious: Yes (Hospitalization, Other)
  Sender: FDA-Public Use
  Company Number: 2012SP002281

PATIENT
  Age: 51 Year
  Sex: Female

DRUGS (11)
  1. XANAX [Concomitant]
     Indication: PRODUCT USED FOR UNKNOWN INDICATION
  2. XOPENEX [Suspect]
     Route: 055
     Dates: start: 20120801
  3. BUDESONIDE [Suspect]
     Route: 055
  4. BROVANA [Suspect]
     Indication: BRONCHIECTASIS
     Route: 055
     Dates: start: 20110101, end: 20120803
  5. BUDESONIDE [Suspect]
     Indication: PRODUCT USED FOR UNKNOWN INDICATION
     Route: 055
  6. XOPENEX [Suspect]
     Route: 055
     Dates: start: 20120101, end: 20120101
  7. ALLEGRA [Concomitant]
     Indication: PRODUCT USED FOR UNKNOWN INDICATION
  8. SPIRIVA [Concomitant]
     Indication: PRODUCT USED FOR UNKNOWN INDICATION
     Dates: start: 20120813
  9. SPIRIVA [Concomitant]
     Dates: end: 20120813
  10. XOPENEX [Suspect]
     Indication: BRONCHIECTASIS
     Route: 055
     Dates: start: 20120801
  11. PREDNISONE TAB [Concomitant]
     Indication: BRONCHIECTASIS

REACTIONS (5)
  - THYMOMA MALIGNANT RECURRENT [None]
  - MIDDLE INSOMNIA [None]
  - DRUG INEFFECTIVE [None]
  - DYSPNOEA [None]
  - TREMOR [None]
